FAERS Safety Report 6466706-8 (Version None)
Quarter: 2009Q4

REPORT INFORMATION
  Report Type: 
  Country: None (occurrence: None)
  Receive Date: 20091202
  Receipt Date: 20091124
  Transmission Date: 20100525
  Serious: Yes (Other)
  Sender: FDA-Public Use
  Company Number: US-AMGEN-QUU376704

PATIENT
  Sex: Male

DRUGS (1)
  1. ENBREL [Suspect]
     Indication: ANKYLOSING SPONDYLITIS
     Route: 058

REACTIONS (6)
  - INJECTION SITE PAIN [None]
  - MULTIPLE ALLERGIES [None]
  - MUSCULOSKELETAL STIFFNESS [None]
  - RENAL CYST [None]
  - TESTICULAR CYST [None]
  - UPPER RESPIRATORY TRACT INFECTION [None]
